FAERS Safety Report 11215612 (Version 2)
Quarter: 2015Q3

REPORT INFORMATION
  Report Type: Spontaneous
  Country: CH (occurrence: None)
  Receive Date: 20150622
  Receipt Date: 20150811
  Transmission Date: 20151125
  Serious: Yes (Hospitalization)
  Sender: FDA-Public Use
  Company Number: 2015FE02002

PATIENT
  Age: 70 Year
  Sex: Female

DRUGS (1)
  1. PICOPREP [Suspect]
     Active Substance: CITRIC ACID MONOHYDRATE\MAGNESIUM OXIDE\SODIUM PICOSULFATE
     Indication: PRODUCT USED FOR UNKNOWN INDICATION
     Route: 048

REACTIONS (2)
  - Syncope [None]
  - Circulatory collapse [None]

NARRATIVE: CASE EVENT DATE: 201506
